FAERS Safety Report 4576787-4 (Version None)
Quarter: 2005Q1

REPORT INFORMATION
  Report Type: 
  Country: None (occurrence: None)
  Receive Date: 20050210
  Receipt Date: 20050204
  Transmission Date: 20050727
  Serious: Yes (Death)
  Sender: FDA-Public Use
  Company Number: US-JNJFOC-20050201673

PATIENT
  Age: 48 Year
  Sex: Female
  Weight: 58.97 kg

DRUGS (5)
  1. DURAGESIC [Suspect]
     Route: 062
  2. ADDERALL 10 [Concomitant]
     Route: 049
  3. ADDERALL 10 [Concomitant]
     Route: 049
  4. ADDERALL 10 [Concomitant]
     Route: 049
  5. ADDERALL 10 [Concomitant]
     Dosage: 1 DAILY
     Route: 049

REACTIONS (3)
  - DRUG TOXICITY [None]
  - INTENTIONAL MISUSE [None]
  - RESPIRATORY FAILURE [None]
